FAERS Safety Report 24735233 (Version 2)
Quarter: 2024Q4

REPORT INFORMATION
  Report Type: Report from Study
  Country: AR (occurrence: AR)
  Receive Date: 20241215
  Receipt Date: 20241224
  Transmission Date: 20250115
  Serious: Yes (Other)
  Sender: NOVARTIS
  Company Number: AR-002147023-NVSC2024AR110349

PATIENT
  Age: 49 Year
  Sex: Female

DRUGS (5)
  1. COSENTYX [Suspect]
     Active Substance: SECUKINUMAB
     Indication: Psoriatic arthropathy
     Dosage: 300 MG, QW
     Route: 058
     Dates: start: 20240503
  2. COSENTYX [Suspect]
     Active Substance: SECUKINUMAB
     Indication: Psoriasis
     Dosage: 300 MG, QMO-ONGOING
     Route: 058
  3. COSENTYX [Suspect]
     Active Substance: SECUKINUMAB
     Dosage: 2 DOSAGE FORM (150MG)
     Route: 065
     Dates: start: 20241022
  4. LEVOTHYROXINE [Concomitant]
     Active Substance: LEVOTHYROXINE
     Indication: Product used for unknown indication
     Dosage: UNK (BEFORE COSENTYX)
     Route: 065
  5. AMITRIPTYLINE [Concomitant]
     Active Substance: AMITRIPTYLINE
     Indication: Product used for unknown indication
     Dosage: UNK (BEFORE COSENTYX)
     Route: 065

REACTIONS (18)
  - Psoriatic arthropathy [Unknown]
  - Osteosclerosis [Unknown]
  - Hypertension [Unknown]
  - Headache [Unknown]
  - Wound [Unknown]
  - Skin lesion [Recovering/Resolving]
  - Limb injury [Unknown]
  - Musculoskeletal discomfort [Unknown]
  - Drug effect less than expected [Unknown]
  - Treatment failure [Unknown]
  - Glucose tolerance impaired [Unknown]
  - Oedema [Unknown]
  - Intervertebral disc protrusion [Unknown]
  - Osteoarthritis [Unknown]
  - Bone disorder [Unknown]
  - C-reactive protein increased [Unknown]
  - Pain [Recovering/Resolving]
  - Psoriasis [Unknown]

NARRATIVE: CASE EVENT DATE: 20240510
